FAERS Safety Report 17957536 (Version 2)
Quarter: 2020Q3

REPORT INFORMATION
  Report Type: Report from Study
  Country: US (occurrence: US)
  Receive Date: 20200629
  Receipt Date: 20200716
  Transmission Date: 20201103
  Serious: Yes (Hospitalization, Other)
  Sender: FDA-Public Use
  Company Number: US-ACTELION-A-US2020-206545

PATIENT
  Age: 6 Month
  Sex: Male

DRUGS (3)
  1. RANITIDINE. [Concomitant]
     Active Substance: RANITIDINE
     Dosage: 6.5 MG, Q12HRS
  2. TADALAFIL. [Concomitant]
     Active Substance: TADALAFIL
     Dosage: 9 MG, QD
     Dates: start: 20191201
  3. TRACLEER [Suspect]
     Active Substance: BOSENTAN
     Indication: PRODUCT USED FOR UNKNOWN INDICATION
     Dosage: 16 MG, BID
     Route: 048
     Dates: start: 20191211

REACTIONS (5)
  - Tracheostomy [Unknown]
  - Chronic respiratory failure [Unknown]
  - Dysphagia [Unknown]
  - Gastrostomy [Unknown]
  - Dependence on respirator [Unknown]

NARRATIVE: CASE EVENT DATE: 20200116
